FAERS Safety Report 7831391-7 (Version None)
Quarter: 2011Q4

REPORT INFORMATION
  Report Type: 
  Country: None (occurrence: None)
  Receive Date: 20111021
  Receipt Date: 20111013
  Transmission Date: 20120403
  Serious: Yes (Hospitalization, Other)
  Sender: FDA-Public Use
  Company Number: US-CELGENEUS-163-20785-11072820

PATIENT
  Sex: Male

DRUGS (8)
  1. DAPSONE [Concomitant]
     Dosage: 50 MILLIGRAM
     Route: 065
     Dates: start: 20080301
  2. MINOCIN [Concomitant]
     Dosage: 100 MILLIGRAM
     Route: 065
     Dates: start: 20080301
  3. THALOMID [Suspect]
     Indication: LEPROMATOUS LEPROSY
     Dosage: 200 MILLIGRAM
     Route: 048
     Dates: start: 20080801
  4. THALOMID [Suspect]
     Dosage: 50-200MG
     Route: 048
     Dates: start: 20090101
  5. THALOMID [Suspect]
     Dosage: 200 MILLIGRAM
     Route: 048
     Dates: start: 20091101
  6. THALOMID [Suspect]
     Dosage: 50-200MG
     Route: 048
     Dates: start: 20110301
  7. PREDNISONE [Suspect]
     Dosage: 40 MILLIGRAM
     Route: 065
     Dates: start: 20110701
  8. RANITIDINE [Concomitant]
     Dosage: 150 MILLIGRAM
     Route: 048
     Dates: start: 20110201, end: 20110701

REACTIONS (2)
  - CHOLECYSTITIS [None]
  - PANCREATITIS [None]
